FAERS Safety Report 12548081 (Version 1)
Quarter: 2016Q3

REPORT INFORMATION
  Report Type: Spontaneous
  Country: US (occurrence: None)
  Receive Date: 20160711
  Receipt Date: 20160711
  Transmission Date: 20161109
  Serious: Yes (Life-Threatening, Hospitalization, Disabling)
  Sender: FDA-Public Use
  Company Number: None

PATIENT
  Age: 45 Year
  Sex: Male
  Weight: 127.01 kg

DRUGS (7)
  1. THORAZINE [Concomitant]
     Active Substance: CHLORPROMAZINE
  2. HYDROCODONE [Concomitant]
     Active Substance: HYDROCODONE
  3. LATUDA [Suspect]
     Active Substance: LURASIDONE HYDROCHLORIDE
     Indication: SCHIZOAFFECTIVE DISORDER BIPOLAR TYPE
     Route: 048
     Dates: start: 20150801, end: 20160624
  4. EMSAM [Concomitant]
     Active Substance: SELEGILINE
  5. BENADRYL [Concomitant]
     Active Substance: DIPHENHYDRAMINE HYDROCHLORIDE
  6. KLONOPIN [Concomitant]
     Active Substance: CLONAZEPAM
  7. ALBUTEROL. [Concomitant]
     Active Substance: ALBUTEROL

REACTIONS (5)
  - Intentional self-injury [None]
  - Suicide attempt [None]
  - Poor personal hygiene [None]
  - Suicidal ideation [None]
  - Mood altered [None]

NARRATIVE: CASE EVENT DATE: 20151005
